FAERS Safety Report 8952289 (Version 1)
Quarter: 2012Q4

REPORT INFORMATION
  Report Type: 
  Country: DE (occurrence: DE)
  Receive Date: 20121205
  Receipt Date: 20121205
  Transmission Date: 20130627
  Serious: Yes (Death)
  Sender: FDA-Public Use
  Company Number: DE-MERCK-2012SP028002

PATIENT
  Age: 78 Year
  Sex: Male

DRUGS (1)
  1. NOXAFIL [Suspect]
     Indication: ASPERGILLOSIS

REACTIONS (1)
  - Pneumonia bacterial [Fatal]
